FAERS Safety Report 5020833-0 (Version None)
Quarter: 2006Q2

REPORT INFORMATION
  Report Type: 
  Country: None (occurrence: None)
  Receive Date: 20060606
  Receipt Date: 20060606
  Transmission Date: 20061013
  Serious: Yes (Other)
  Sender: FDA-Public Use
  Company Number: None

PATIENT
  Age: 42 Year
  Sex: Female
  Weight: 47.6277 kg

DRUGS (1)
  1. KETEK [Suspect]
     Indication: ABDOMINAL PAIN UPPER
     Dosage: 400 MG 2 QD PO
     Route: 048
     Dates: start: 20051001

REACTIONS (1)
  - ABDOMINAL PAIN UPPER [None]
